FAERS Safety Report 17510942 (Version 2)
Quarter: 2021Q1

REPORT INFORMATION
  Report Type: Spontaneous
  Country: US (occurrence: US)
  Receive Date: 20200306
  Receipt Date: 20210304
  Transmission Date: 20210419
  Serious: No
  Sender: FDA-Public Use
  Company Number: US-HARMONY BIOSCIENCES-2020HMY00027

PATIENT
  Age: 18 Year
  Sex: Male
  Weight: 59.41 kg

DRUGS (8)
  1. WAKIX [Suspect]
     Active Substance: PITOLISANT HYDROCHLORIDE
     Indication: NARCOLEPSY
     Dosage: 8.9 MG, 1X/DAY
     Route: 048
     Dates: start: 20200107, end: 20200110
  2. ZYRTEC OTC [Concomitant]
  3. MULTIVITAMINS [Concomitant]
     Active Substance: VITAMINS
  4. EPINEPHRINE. [Concomitant]
     Active Substance: EPINEPHRINE
     Dosage: UNK
  5. WAKIX [Suspect]
     Active Substance: PITOLISANT HYDROCHLORIDE
     Indication: NARCOLEPSY
     Dosage: 17.8 MG 1X/DAY
     Dates: start: 20200107, end: 2020
  6. DUPIXENT [Concomitant]
     Active Substance: DUPILUMAB
  7. WAKIX [Suspect]
     Active Substance: PITOLISANT HYDROCHLORIDE
     Dosage: 35.6 MG, 1X/DAY
     Route: 048
     Dates: start: 20200824
  8. XYREM [Concomitant]
     Active Substance: SODIUM OXYBATE

REACTIONS (8)
  - Somnolence [Recovered/Resolved]
  - Narcolepsy [Not Recovered/Not Resolved]
  - Respiratory tract congestion [Recovered/Resolved]
  - Weight decreased [Not Recovered/Not Resolved]
  - Drug ineffective [Not Recovered/Not Resolved]
  - Cough [Recovered/Resolved]
  - Respiratory tract infection [Recovered/Resolved]
  - Rhinorrhoea [Recovered/Resolved]

NARRATIVE: CASE EVENT DATE: 202001
